FAERS Safety Report 7003129-7 (Version None)
Quarter: 2010Q3

REPORT INFORMATION
  Report Type: 
  Country: None (occurrence: None)
  Receive Date: 20100920
  Receipt Date: 20100518
  Transmission Date: 20110219
  Serious: No
  Sender: FDA-Public Use
  Company Number: US-ASTRAZENECA-2010SE22785

PATIENT
  Age: 57 Year
  Sex: Male

DRUGS (6)
  1. SEROQUEL [Suspect]
     Indication: SCHIZOPHRENIA, PARANOID TYPE
     Route: 048
     Dates: start: 20060101, end: 20100517
  2. CELEXA [Concomitant]
  3. RITALIN [Concomitant]
  4. DIAZEPAM [Concomitant]
  5. CRESTOR [Concomitant]
  6. NEXIUM [Concomitant]

REACTIONS (2)
  - ANXIETY [None]
  - DRUG DOSE OMISSION [None]
